FAERS Safety Report 6046925-5 (Version None)
Quarter: 2009Q1

REPORT INFORMATION
  Report Type: 
  Country: None (occurrence: None)
  Receive Date: 20090122
  Receipt Date: 20090114
  Transmission Date: 20090719
  Serious: Yes (Other)
  Sender: FDA-Public Use
  Company Number: US-WYE-H07721809

PATIENT
  Sex: Female
  Weight: 54.48 kg

DRUGS (1)
  1. ROBITUSSIN COUGH LONG ACTING [Suspect]
     Indication: EUPHORIC MOOD
     Dosage: ONE BOTTLE DAILY
     Route: 048

REACTIONS (6)
  - CONVULSION [None]
  - DRUG ABUSE [None]
  - DRUG DEPENDENCE [None]
  - DRUG WITHDRAWAL SYNDROME [None]
  - INTENTIONAL OVERDOSE [None]
  - MEMORY IMPAIRMENT [None]
